FAERS Safety Report 5674038-0 (Version None)
Quarter: 2008Q1

REPORT INFORMATION
  Report Type: 
  Country: None (occurrence: None)
  Receive Date: 20080319
  Receipt Date: 20080319
  Transmission Date: 20080703
  Serious: Yes (Life-Threatening, Hospitalization, Other)
  Sender: FDA-Public Use
  Company Number: None

PATIENT
  Sex: Female
  Weight: 53.978 kg

DRUGS (2)
  1. VANCOMYCIN [Suspect]
     Indication: PNEUMONIA
     Dosage: 750MG IV Q 8HR IV
     Route: 042
     Dates: start: 20080205, end: 20080216
  2. ZOSYN [Concomitant]

REACTIONS (7)
  - BLINDNESS TRANSIENT [None]
  - BLOOD AMYLASE INCREASED [None]
  - CONVULSION [None]
  - ENCEPHALOPATHY [None]
  - HYPERTENSION [None]
  - LIPASE INCREASED [None]
  - RENAL FAILURE ACUTE [None]
